FAERS Safety Report 6163786-4 (Version None)
Quarter: 2009Q2

REPORT INFORMATION
  Report Type: 
  Country: None (occurrence: None)
  Receive Date: 20090422
  Receipt Date: 20090420
  Transmission Date: 20091009
  Serious: Yes (Death)
  Sender: FDA-Public Use
  Company Number: US-JNJFOC-20090300701

PATIENT
  Sex: Female
  Weight: 96.62 kg

DRUGS (1)
  1. DURAGESIC-100 [Suspect]
     Indication: PAIN
     Route: 048

REACTIONS (2)
  - INTENTIONAL DRUG MISUSE [None]
  - OVERDOSE [None]
